FAERS Safety Report 21907758 (Version 1)
Quarter: 2023Q1

REPORT INFORMATION
  Report Type: Spontaneous
  Country: DK (occurrence: DK)
  Receive Date: 20230125
  Receipt Date: 20230125
  Transmission Date: 20230418
  Serious: Yes (Hospitalization)
  Sender: FDA-Public Use
  Company Number: None

PATIENT
  Age: 73 Year
  Sex: Male
  Weight: 109 kg

DRUGS (8)
  1. FLUOROURACIL [Suspect]
     Active Substance: FLUOROURACIL
     Indication: Colorectal cancer metastatic
     Dosage: STRENGTH: 50 MG/ML, DOSAGE: LATEST DOSE GIVEN ON 04-NOV-2022 (FIFTH?SERIES)
     Dates: start: 20220909
  2. LEUCOVORIN CALCIUM [Suspect]
     Active Substance: LEUCOVORIN CALCIUM
     Indication: Colorectal cancer metastatic
     Dosage: STRENGTH: 10 MG/ML, DOSAGE: LATEST DOSE GIVEN ON 04 NOV 2022 (FIFTH?SERIES)
     Dates: start: 20220909
  3. IRINOTECAN [Suspect]
     Active Substance: IRINOTECAN
     Indication: Colorectal cancer metastatic
     Dosage: STRENGTH: 20MG/ML, DOSAGE: LATEST DOSE GIVEN ON 04-NOV-2022 (FIFTH SERIES)
     Dates: start: 20220909
  4. VECTIBIX [Suspect]
     Active Substance: PANITUMUMAB
     Indication: Colorectal cancer metastatic
     Dosage: STRENGTH: 20MG/ML, DOSAGE: VARYING DOSES, 480 MG GIVEN ON 04-NOV-2022?(LATEST DOSE, FIFTH SERIES)
     Dates: start: 20220909
  5. AMLODIPINE [Concomitant]
     Active Substance: AMLODIPINE BESYLATE
     Indication: Hypertension
     Dates: start: 20210330
  6. DOXYCYCLINE [Concomitant]
     Active Substance: DOXYCYCLINE
     Indication: Product used for unknown indication
     Dates: start: 20220923
  7. LOSARTAN [Concomitant]
     Active Substance: LOSARTAN
     Indication: Hypertension
     Dates: start: 20201123
  8. Pevisone [Concomitant]
     Indication: Eczema infected
     Dates: start: 20210729

REACTIONS (5)
  - Rash erythematous [Recovered/Resolved]
  - Pustule [Recovered/Resolved]
  - Dermatitis [Recovered/Resolved]
  - Papule [Recovered/Resolved]
  - Pruritus [Recovered/Resolved]

NARRATIVE: CASE EVENT DATE: 20221101
